FAERS Safety Report 15854350 (Version 8)
Quarter: 2019Q4

REPORT INFORMATION
  Report Type: Spontaneous
  Country: ES (occurrence: ES)
  Receive Date: 20190122
  Receipt Date: 20191210
  Transmission Date: 20200122
  Serious: Yes (Disabling)
  Sender: FDA-Public Use
  Company Number: ES-PFIZER INC-2019022624

PATIENT
  Age: 65 Year
  Sex: Male

DRUGS (15)
  1. MOTILIUM [Concomitant]
     Active Substance: DOMPERIDONE
     Indication: OESOPHAGEAL DISORDER
     Dosage: UNK
     Route: 065
  2. RIVOTRIL [Concomitant]
     Active Substance: CLONAZEPAM
     Dosage: 2 MG, 1X/DAY (EVERY DAY)
     Route: 048
  3. NARDIL [Suspect]
     Active Substance: PHENELZINE SULFATE
     Indication: DEPRESSION
     Dosage: UNK (DECREASED TO A MINIMUM DOSE OF 15 (UNITS NOT PROVIDE))
     Dates: start: 2018
  4. MANERIX [Suspect]
     Active Substance: MOCLOBEMIDE
     Indication: DEPRESSION
     Dosage: UNK
  5. NARDYL [Concomitant]
     Indication: DEPRESSION
     Dosage: UNK
  6. SINEMET [Suspect]
     Active Substance: CARBIDOPA\LEVODOPA
     Indication: PARKINSON^S DISEASE
     Dosage: UNK
     Route: 048
     Dates: start: 201804
  7. NARDIL [Suspect]
     Active Substance: PHENELZINE SULFATE
     Indication: DEPRESSION
     Dosage: UNK
     Dates: start: 1993, end: 2018
  8. SINEMET [Suspect]
     Active Substance: CARBIDOPA\LEVODOPA
     Indication: PARKINSON^S DISEASE
     Dosage: 4 DF, 1X/DAY (1 TABLET 4X/DAY)
     Route: 048
     Dates: start: 2017
  9. SINEMET [Suspect]
     Active Substance: CARBIDOPA\LEVODOPA
     Dosage: UNK
     Route: 048
     Dates: start: 201704
  10. SINEMET [Suspect]
     Active Substance: CARBIDOPA\LEVODOPA
     Indication: PARKINSON^S DISEASE
     Dosage: UNK
     Route: 048
  11. MIRAPEXIN [Suspect]
     Active Substance: PRAMIPEXOLE
     Indication: PARKINSON^S DISEASE
     Dosage: 1.05 MG, 1X/DAY (EVERY DAY)
     Route: 048
  12. RIVOTRIL [Concomitant]
     Active Substance: CLONAZEPAM
     Dosage: 4 MG, 1X/DAY (EVERY DAY)
     Route: 048
  13. TRANKIMAZIN [Concomitant]
     Active Substance: ALPRAZOLAM
     Indication: DEPRESSION
     Dosage: 0.5 MG, 1X/DAY (AS NEEDED)
     Route: 048
  14. NARDIL [Suspect]
     Active Substance: PHENELZINE SULFATE
     Indication: BIPOLAR I DISORDER
     Dosage: UNK
     Dates: start: 201806
  15. SINEMET PLUS [Suspect]
     Active Substance: CARBIDOPA\LEVODOPA
     Indication: PARKINSON^S DISEASE
     Dosage: UNK (STRENGTH: 25MG/100MG)
     Route: 048
     Dates: start: 201804

REACTIONS (38)
  - Hallucination [Unknown]
  - Intentional product use issue [Recovered/Resolved]
  - Alopecia [Not Recovered/Not Resolved]
  - Onychomalacia [Unknown]
  - Hot flush [Unknown]
  - Urinary incontinence [Recovering/Resolving]
  - Swelling of eyelid [Not Recovered/Not Resolved]
  - Sudden onset of sleep [Not Recovered/Not Resolved]
  - Product prescribing error [Unknown]
  - Tooth injury [Unknown]
  - Saliva altered [Unknown]
  - Ageusia [Not Recovered/Not Resolved]
  - Agitation [Unknown]
  - Miosis [Not Recovered/Not Resolved]
  - Eyelid ptosis [Not Recovered/Not Resolved]
  - Dizziness [Unknown]
  - Vertigo [Unknown]
  - Intentional product misuse [Unknown]
  - Contraindicated product administered [Unknown]
  - Anxiety [Unknown]
  - Urinary incontinence [Recovering/Resolving]
  - Dizziness [Unknown]
  - Dry mouth [Unknown]
  - Weight decreased [Unknown]
  - Somnolence [Not Recovered/Not Resolved]
  - Bruxism [Unknown]
  - Contraindicated product prescribed [Unknown]
  - Dizziness [Not Recovered/Not Resolved]
  - Therapeutic response unexpected [Unknown]
  - Sensation of foreign body [Unknown]
  - Gastrointestinal disorder [Unknown]
  - Gait disturbance [Unknown]
  - Muscle rigidity [Unknown]
  - Back pain [Unknown]
  - Contraindicated product prescribed [Unknown]
  - Asthenia [Unknown]
  - Nervousness [Unknown]
  - Erythema [Unknown]

NARRATIVE: CASE EVENT DATE: 2017
